FAERS Safety Report 22150254 (Version 2)
Quarter: 2023Q2

REPORT INFORMATION
  Report Type: Spontaneous
  Country: JP (occurrence: JP)
  Receive Date: 20230329
  Receipt Date: 20230530
  Transmission Date: 20230722
  Serious: Yes (Other)
  Sender: FDA-Public Use
  Company Number: JP-JNJFOC-20230364064

PATIENT
  Age: 64 Year
  Sex: Male

DRUGS (14)
  1. OPSUMIT [Suspect]
     Active Substance: MACITENTAN
     Indication: Pulmonary hypertension
     Dosage: DOSE UNKNOWN
     Route: 048
  2. OPSUMIT [Suspect]
     Active Substance: MACITENTAN
     Indication: Pulmonary hypertension
     Dosage: DOSE UNKNOWN, GRADUALLY INCREASED
     Route: 048
  3. OPSUMIT [Suspect]
     Active Substance: MACITENTAN
     Route: 048
  4. SILDENAFIL CITRATE [Suspect]
     Active Substance: SILDENAFIL CITRATE
     Indication: Pulmonary hypertension
     Dosage: DOSE UNKNOWN
     Route: 048
  5. SILDENAFIL CITRATE [Suspect]
     Active Substance: SILDENAFIL CITRATE
     Dosage: DOSE UNKNOWN, GRADUALLY INCREASED
     Route: 048
  6. SILDENAFIL CITRATE [Suspect]
     Active Substance: SILDENAFIL CITRATE
     Route: 048
  7. PREDNISOLONE [Concomitant]
     Active Substance: PREDNISOLONE
     Route: 065
  8. TOCILIZUMAB [Concomitant]
     Active Substance: TOCILIZUMAB
     Route: 065
  9. MYCOPHENOLATE MOFETIL [Concomitant]
     Active Substance: MYCOPHENOLATE MOFETIL
     Dosage: DOSE UNKNOWN
     Route: 048
  10. OXYGEN [Concomitant]
     Active Substance: OXYGEN
     Dosage: 3L/MIN NASAL
     Route: 055
  11. OXYGEN [Concomitant]
     Active Substance: OXYGEN
     Dosage: 3L/MIN OXYMIZER
     Route: 055
  12. OXYGEN [Concomitant]
     Active Substance: OXYGEN
     Dosage: 5L/MIN OXYMIZER
     Route: 055
  13. ADRENAL [Concomitant]
     Active Substance: EPINEPHRINE
     Dosage: DOSE UNKNOWN
     Route: 065
  14. ADRENAL [Concomitant]
     Active Substance: EPINEPHRINE
     Dosage: DOSE UNKNOWN, GRADUALLY DECREASED
     Route: 065

REACTIONS (4)
  - Hypoxia [Unknown]
  - Ventilation perfusion mismatch [Recovered/Resolved]
  - Off label use [Unknown]
  - Off label use [Unknown]
